FAERS Safety Report 9687860 (Version 1)
Quarter: 2013Q4

REPORT INFORMATION
  Report Type: Spontaneous
  Country: US (occurrence: None)
  Receive Date: 20131113
  Receipt Date: 20131113
  Transmission Date: 20140711
  Serious: Yes (Death)
  Sender: FDA-Public Use
  Company Number: None

PATIENT
  Age: 20 Year
  Sex: Male
  Weight: 108.86 kg

DRUGS (1)
  1. CYCLOBENZAPRINE 10MG CAMBER [Suspect]
     Indication: MUSCLE SPASMS
     Dosage: ONE TABLET
     Route: 048
     Dates: start: 20131018, end: 20131101

REACTIONS (3)
  - Completed suicide [None]
  - Head injury [None]
  - Gun shot wound [None]
